FAERS Safety Report 11525388 (Version 1)
Quarter: 2015Q3

REPORT INFORMATION
  Report Type: Spontaneous
  Country: DE (occurrence: DE)
  Receive Date: 20150918
  Receipt Date: 20150918
  Transmission Date: 20151125
  Serious: Yes (Other)
  Sender: FDA-Public Use
  Company Number: DE-TEVA-592789GER

PATIENT
  Age: 23 Year
  Sex: Female

DRUGS (1)
  1. CLINDAMYCINHYDROCHLORID [Suspect]
     Active Substance: CLINDAMYCIN HYDROCHLORIDE
     Indication: TONSILLITIS
     Route: 048
     Dates: start: 20150826

REACTIONS (5)
  - Insomnia [Recovered/Resolved]
  - Suicidal ideation [Recovered/Resolved]
  - Agitation [Recovered/Resolved]
  - Affect lability [Recovered/Resolved]
  - Fatigue [Recovered/Resolved]

NARRATIVE: CASE EVENT DATE: 20150826
